FAERS Safety Report 11330448 (Version 1)
Quarter: 2015Q3

REPORT INFORMATION
  Report Type: Spontaneous
  Country: BG (occurrence: BG)
  Receive Date: 20150803
  Receipt Date: 20150803
  Transmission Date: 20151125
  Serious: Yes (Hospitalization)
  Sender: FDA-Public Use
  Company Number: BG-ACTAVIS-2015-15627

PATIENT
  Age: 67 Year
  Sex: Female

DRUGS (4)
  1. MIXTARD                            /00806401/ [Concomitant]
     Indication: DIABETES MELLITUS
     Dosage: UNK
     Route: 065
  2. AZATRIL [Suspect]
     Active Substance: AZITHROMYCIN DIHYDRATE
     Indication: BODY TEMPERATURE INCREASED
     Dosage: 1 DF, DAILY
     Route: 048
     Dates: start: 20150513, end: 20150515
  3. IBUPROFEN. [Suspect]
     Active Substance: IBUPROFEN
     Indication: BODY TEMPERATURE INCREASED
     Dosage: 1 DF, BID
     Route: 048
     Dates: start: 20150513, end: 20150515
  4. DIAPREL [Concomitant]
     Active Substance: GLICLAZIDE
     Indication: DIABETES MELLITUS
     Dosage: UNK
     Route: 048

REACTIONS (1)
  - Toxic epidermal necrolysis [Recovered/Resolved]

NARRATIVE: CASE EVENT DATE: 20150515
